FAERS Safety Report 5253262-5 (Version None)
Quarter: 2007Q1

REPORT INFORMATION
  Report Type: 
  Country: None (occurrence: None)
  Receive Date: 20070301
  Receipt Date: 20070220
  Transmission Date: 20070707
  Serious: Yes (Hospitalization)
  Sender: FDA-Public Use
  Company Number: US-ELI_LILLY_AND_COMPANY-US200702004061

PATIENT
  Age: 80 Year
  Sex: Female

DRUGS (3)
  1. FORTEO [Suspect]
     Indication: OSTEOPOROSIS
     Dates: start: 20051101
  2. FORTEO [Suspect]
  3. FORTEO [Suspect]

REACTIONS (2)
  - HIP ARTHROPLASTY [None]
  - INJECTION SITE BRUISING [None]
